FAERS Safety Report 24272234 (Version 2)
Quarter: 2024Q4

REPORT INFORMATION
  Report Type: Spontaneous
  Country: US (occurrence: US)
  Receive Date: 20240902
  Receipt Date: 20241122
  Transmission Date: 20250115
  Serious: No
  Sender: AMGEN
  Company Number: US-AMGEN-USASP2024173445

PATIENT

DRUGS (2)
  1. RIABNI [Suspect]
     Active Substance: RITUXIMAB-ARRX
     Indication: Product used for unknown indication
     Dosage: (DOSE REQUESTED: RIABNI 500 MG X 1, RIABNI 100 MG X 1)
     Route: 065
  2. RIABNI [Suspect]
     Active Substance: RITUXIMAB-ARRX
     Dosage: (DOSE REQUESTED: RIABNI 500 MG X 1, RIABNI 100 MG X 1)
     Route: 065

REACTIONS (2)
  - Laboratory test abnormal [Unknown]
  - Product administration error [Unknown]
